FAERS Safety Report 4288993-7 (Version None)
Quarter: 2004Q1

REPORT INFORMATION
  Report Type: 
  Country: None (occurrence: None)
  Receive Date: 20040202
  Receipt Date: 20030828
  Transmission Date: 20041129
  Serious: Yes (Hospitalization)
  Sender: FDA-Public Use
  Company Number: 01P-163-0111075-00

PATIENT
  Age: 56 Year
  Sex: Female
  Weight: 87.5442 kg

DRUGS (10)
  1. TRICOR [Suspect]
     Indication: HYPERLIPIDAEMIA
     Dosage: 200 MG, 1 IN 1 D, PER ORAL
     Route: 048
     Dates: start: 20010814, end: 20010826
  2. ISOPHANE INSULIN [Concomitant]
  3. METFORMIN HYDROCHLORIDE [Concomitant]
  4. ACTOS [Concomitant]
  5. QUINAPRIL HYDROCHLORIDE [Concomitant]
  6. AMITRIPTYLINE HYDROCHLORIDE [Concomitant]
  7. DI-GESIC [Concomitant]
  8. AMITRIPTYLINE HCL [Concomitant]
  9. LOMOTIL [Concomitant]
  10. ACETYLSALICYLIC ACID SRT [Concomitant]

REACTIONS (8)
  - BLOOD CREATINE PHOSPHOKINASE INCREASED [None]
  - BUNDLE BRANCH BLOCK LEFT [None]
  - DIARRHOEA [None]
  - HEPATIC ENZYME INCREASED [None]
  - MUSCLE INJURY [None]
  - MYALGIA [None]
  - MYOSITIS [None]
  - RENAL FAILURE [None]
